FAERS Safety Report 11455068 (Version 1)
Quarter: 2015Q3

REPORT INFORMATION
  Report Type: Spontaneous
  Country: US (occurrence: US)
  Receive Date: 20150903
  Receipt Date: 20150903
  Transmission Date: 20151125
  Serious: Yes (Life-Threatening, Other)
  Sender: FDA-Public Use
  Company Number: US-GLAXOSMITHKLINE-US2015GSK126471

PATIENT
  Sex: Male

DRUGS (1)
  1. WELLBUTRIN [Suspect]
     Active Substance: BUPROPION HYDROCHLORIDE
     Indication: PRODUCT USED FOR UNKNOWN INDICATION
     Dosage: UNK

REACTIONS (7)
  - Bipolar disorder [Unknown]
  - Attention deficit/hyperactivity disorder [Unknown]
  - Suicide attempt [Unknown]
  - Schizophrenia [Unknown]
  - Depression [Unknown]
  - Loss of consciousness [Unknown]
  - Seizure [Unknown]

NARRATIVE: CASE EVENT DATE: 201507
